FAERS Safety Report 8811623 (Version 1)
Quarter: 2012Q4

REPORT INFORMATION
  Report Type: 
  Country: US (occurrence: US)
  Receive Date: 20120927
  Receipt Date: 20120927
  Transmission Date: 20130627
  Serious: Yes (Hospitalization)
  Sender: FDA-Public Use
  Company Number: US-B.I. PHARMACEUTICALS,INC./RIDGEFIELD-2012-BP-22915BP

PATIENT
  Age: 90 Year
  Sex: Male

DRUGS (8)
  1. PRADAXA [Suspect]
     Indication: ATRIAL FIBRILLATION
     Dosage: 150 mg
     Route: 048
     Dates: start: 201112
  2. AMLODIPINE [Concomitant]
     Indication: CARDIAC DISORDER
     Dosage: 5 mg
     Route: 048
  3. LANSOPRAZOLE [Concomitant]
     Indication: ABDOMINAL DISCOMFORT
     Dosage: 30 mg
     Route: 048
  4. MECLIZINE [Concomitant]
     Indication: DIZZINESS
     Route: 048
  5. NITROSTAT [Concomitant]
     Indication: CARDIAC DISORDER
     Route: 048
  6. METOPROLOL [Concomitant]
     Indication: CARDIAC DISORDER
     Dosage: 50 mg
     Route: 048
  7. SIMVASTATIN [Concomitant]
     Indication: BLOOD CHOLESTEROL ABNORMAL
     Dosage: 40 mg
     Route: 048
  8. GLIPIZIDE [Concomitant]
     Indication: DIABETES MELLITUS
     Dosage: 10 mg
     Route: 048

REACTIONS (1)
  - Dizziness [Recovered/Resolved]
